FAERS Safety Report 18287531 (Version 2)
Quarter: 2022Q1

REPORT INFORMATION
  Report Type: Spontaneous
  Country: US (occurrence: US)
  Receive Date: 20200921
  Receipt Date: 20220131
  Transmission Date: 20220424
  Serious: Yes (Other)
  Sender: FDA-Public Use
  Company Number: US-SAARTEMIS-SAC202009170246

PATIENT
  Age: 45 Year
  Sex: Female

DRUGS (1)
  1. ZANTAC [Suspect]
     Active Substance: RANITIDINE HYDROCHLORIDE
     Indication: Dyspepsia
     Dosage: UNK, QD
     Dates: start: 199508, end: 200605

REACTIONS (2)
  - Pancreatic carcinoma stage IV [Recovering/Resolving]
  - Hepatic cancer stage IV [Recovering/Resolving]

NARRATIVE: CASE EVENT DATE: 20130101
